FAERS Safety Report 12158476 (Version 1)
Quarter: 2016Q1

REPORT INFORMATION
  Report Type: Spontaneous
  Country: US (occurrence: US)
  Receive Date: 20160308
  Receipt Date: 20160308
  Transmission Date: 20160526
  Serious: No
  Sender: FDA-Public Use
  Company Number: US-JNJFOC-20160212961

PATIENT
  Age: 13 Month
  Sex: Male
  Weight: 12.7 kg

DRUGS (5)
  1. CHILDRENS MOTRIN [Suspect]
     Active Substance: IBUPROFEN
     Indication: PYREXIA
     Route: 048
     Dates: start: 20160204, end: 20160211
  2. CHILDREN^S TYLENOL GRAPE SPLASH [Concomitant]
     Indication: VIRAL INFECTION
     Route: 065
     Dates: start: 20160204
  3. CHILDRENS MOTRIN [Suspect]
     Active Substance: IBUPROFEN
     Indication: TEETHING
     Route: 048
     Dates: start: 20160204, end: 20160211
  4. CHILDRENS MOTRIN [Suspect]
     Active Substance: IBUPROFEN
     Indication: VIRAL INFECTION
     Route: 048
     Dates: start: 20160204, end: 20160211
  5. CHILDREN^S TYLENOL GRAPE SPLASH [Concomitant]
     Indication: PYREXIA
     Route: 065
     Dates: start: 20160204

REACTIONS (3)
  - Expired product administered [Unknown]
  - Off label use [Unknown]
  - Product use issue [Unknown]

NARRATIVE: CASE EVENT DATE: 20160204
